FAERS Safety Report 10182134 (Version 1)
Quarter: 2014Q2

REPORT INFORMATION
  Report Type: Spontaneous
  Country: CH (occurrence: CH)
  Receive Date: 20140520
  Receipt Date: 20140520
  Transmission Date: 20141212
  Serious: Yes (Hospitalization)
  Sender: FDA-Public Use
  Company Number: CH-BEH-2014042728

PATIENT
  Age: 52 Year
  Sex: Female

DRUGS (5)
  1. HAEMATE [Suspect]
     Indication: HAEMORRHAGE PROPHYLAXIS
  2. OCTOSTIM [Suspect]
     Indication: HAEMORRHAGE PROPHYLAXIS
     Dosage: 1 DF
     Dates: start: 20140220, end: 20140222
  3. MOVIPREP [Suspect]
     Indication: COLONOSCOPY
     Dosage: 1 DF
     Route: 048
     Dates: start: 20140220, end: 20140220
  4. BELOC [Concomitant]
     Route: 048
  5. CYKLOKAPRON [Concomitant]
     Indication: HAEMORRHAGE PROPHYLAXIS

REACTIONS (9)
  - Hyponatraemia [Recovered/Resolved]
  - Blood osmolarity decreased [Recovered/Resolved]
  - Blood pressure systolic increased [None]
  - Dry skin [None]
  - Vertigo positional [None]
  - Nausea [None]
  - Vomiting [None]
  - Tremor [None]
  - Mucosal dryness [None]
